FAERS Safety Report 15736156 (Version 1)
Quarter: 2018Q4

REPORT INFORMATION
  Report Type: Report from Study
  Country: ES (occurrence: ES)
  Receive Date: 20181218
  Receipt Date: 20181218
  Transmission Date: 20190205
  Serious: Yes (Life-Threatening, Hospitalization, Other)
  Sender: FDA-Public Use
  Company Number: ES-TEVA-2018-ES-988104

PATIENT
  Age: 74 Year
  Sex: Male

DRUGS (6)
  1. DILTIAZEM HIDROCLORURO (3735CH) [Interacting]
     Active Substance: DILTIAZEM HYDROCHLORIDE
     Indication: ATRIAL FIBRILLATION
     Dosage: 120 MILLIGRAM DAILY;
     Route: 048
     Dates: start: 20171103, end: 20180330
  2. OMEPRAZOL (2141A) [Concomitant]
     Active Substance: OMEPRAZOLE
     Indication: PROPHYLAXIS AGAINST GASTROINTESTINAL ULCER
     Dosage: 20 MILLIGRAM DAILY;
     Route: 048
     Dates: start: 20120503
  3. IMIDAPRIL HIDROCLORURO (1162CH) [Interacting]
     Active Substance: IMIDAPRIL HYDROCHLORIDE
     Indication: HYPERTENSION
     Dosage: 20 MILLIGRAM DAILY;
     Route: 048
     Dates: start: 20140606, end: 20180330
  4. CLONAZEPAM (635A) [Concomitant]
     Active Substance: CLONAZEPAM
     Indication: PARKINSON^S DISEASE
     Dosage: .5 MILLIGRAM DAILY;
     Route: 048
     Dates: start: 20150526
  5. RASAGILINA (2976A) [Concomitant]
     Indication: PARKINSON^S DISEASE
     Dosage: 1 MILLIGRAM DAILY;
     Route: 048
     Dates: start: 20150622
  6. ATENOLOL (356A) [Suspect]
     Active Substance: ATENOLOL
     Indication: ATRIAL FIBRILLATION
     Dosage: 50 MILLIGRAM DAILY;
     Route: 048
     Dates: start: 20100617, end: 20180330

REACTIONS (3)
  - Syncope [Recovered/Resolved]
  - Drug interaction [Unknown]
  - Bradyarrhythmia [Recovered/Resolved]

NARRATIVE: CASE EVENT DATE: 20180330
